FAERS Safety Report 15028806 (Version 1)
Quarter: 2018Q2

REPORT INFORMATION
  Report Type: Spontaneous
  Country: US (occurrence: US)
  Receive Date: 20180619
  Receipt Date: 20180619
  Transmission Date: 20180711
  Serious: Yes (Other)
  Sender: FDA-Public Use
  Company Number: US-BAYER-2018-111305

PATIENT
  Sex: Female

DRUGS (1)
  1. MIRENA [Suspect]
     Active Substance: LEVONORGESTREL
     Indication: CONTRACEPTION
     Dosage: 20 MCG/24HR, CONT
     Route: 015
     Dates: start: 20150505

REACTIONS (9)
  - Abdominal pain lower [None]
  - Embedded device [None]
  - Cough [None]
  - Fear [None]
  - Arthralgia [None]
  - Back pain [None]
  - Genital haemorrhage [None]
  - Pain [None]
  - Device use issue [None]
